FAERS Safety Report 7732742-4 (Version None)
Quarter: 2011Q3

REPORT INFORMATION
  Report Type: 
  Country: None (occurrence: None)
  Receive Date: 20110829
  Receipt Date: 20110819
  Transmission Date: 20111222
  Serious: Yes (Other)
  Sender: FDA-Public Use
  Company Number: WSDF_00788

PATIENT
  Sex: Male
  Weight: 23 kg

DRUGS (1)
  1. WINRHO SDF LIQUID [Suspect]
     Indication: IDIOPATHIC THROMBOCYTOPENIC PURPURA
     Dosage: (73.9 UG/KG QD INTRAVENOUS (NOT OTHERWISE SPECIFIED) )
     Route: 042
     Dates: start: 20090113, end: 20090113

REACTIONS (6)
  - HAEMOLYSIS [None]
  - ASPARTATE AMINOTRANSFERASE INCREASED [None]
  - EVANS SYNDROME [None]
  - RETICULOCYTE COUNT INCREASED [None]
  - HAEMOGLOBIN DECREASED [None]
  - PYREXIA [None]
